FAERS Safety Report 8968770 (Version 1)
Quarter: 2012Q4

REPORT INFORMATION
  Report Type: 
  Country: US (occurrence: US)
  Receive Date: 20121218
  Receipt Date: 20121218
  Transmission Date: 20130627
  Serious: No
  Sender: FDA-Public Use
  Company Number: US-BRISTOL-MYERS SQUIBB COMPANY-16736308

PATIENT
  Age: 40 Year
  Sex: Female

DRUGS (3)
  1. ABILIFY [Suspect]
     Dosage: Started 3 years ago
  2. TRAZODONE HCL [Suspect]
  3. PROZAC [Suspect]

REACTIONS (1)
  - Pregnancy [Unknown]
